FAERS Safety Report 5150894-X (Version None)
Quarter: 2006Q4

REPORT INFORMATION
  Report Type: 
  Country: None (occurrence: None)
  Receive Date: 20061108
  Receipt Date: 20061026
  Transmission Date: 20070319
  Serious: Yes (Other)
  Sender: FDA-Public Use
  Company Number: 2006134166

PATIENT
  Age: 39 Year
  Sex: Female

DRUGS (1)
  1. BEXTRA [Suspect]
     Indication: ENDOMETRIOSIS
     Dosage: 40 MG (40 MG, 1 IN 1 D),ORAL
     Route: 048
     Dates: start: 20040101, end: 20060601

REACTIONS (6)
  - ASTHENIA [None]
  - CONDITION AGGRAVATED [None]
  - DEPRESSION [None]
  - MOOD SWINGS [None]
  - OVARIAN CYST [None]
  - SUICIDAL BEHAVIOUR [None]
